FAERS Safety Report 12503467 (Version 1)
Quarter: 2016Q2

REPORT INFORMATION
  Report Type: Spontaneous
  Country: US (occurrence: US)
  Receive Date: 20160628
  Receipt Date: 20160628
  Transmission Date: 20160815
  Serious: No
  Sender: FDA-Public Use
  Company Number: US-PFIZER INC-2016300036

PATIENT
  Sex: Female

DRUGS (4)
  1. SONATA [Suspect]
     Active Substance: ZALEPLON
     Indication: SLEEP DISORDER
     Dosage: UNK
  2. SONATA [Suspect]
     Active Substance: ZALEPLON
     Indication: PANIC ATTACK
  3. XANAX [Suspect]
     Active Substance: ALPRAZOLAM
     Indication: SLEEP DISORDER
     Dosage: 1 MG, UNK
  4. XANAX [Suspect]
     Active Substance: ALPRAZOLAM
     Indication: PANIC ATTACK

REACTIONS (1)
  - Drug ineffective [Unknown]
